FAERS Safety Report 20894546 (Version 1)
Quarter: 2022Q2

REPORT INFORMATION
  Report Type: Spontaneous
  Country: US (occurrence: None)
  Receive Date: 20220527
  Receipt Date: 20220527
  Transmission Date: 20220721
  Serious: Yes (Hospitalization, Other)
  Sender: FDA-Public Use
  Company Number: None

PATIENT
  Age: 4 Year
  Sex: Male
  Weight: 18.6 kg

DRUGS (1)
  1. RYLAZE [Suspect]
     Active Substance: ASPARAGINASE ERWINIA CHRYSANTHEMI (RECOMBINANT)-RYWN
     Indication: Acute myeloid leukaemia
     Route: 030
     Dates: end: 20220427

REACTIONS (3)
  - Vision blurred [None]
  - Skin weeping [None]
  - Staphylococcal infection [None]

NARRATIVE: CASE EVENT DATE: 20210525
